FAERS Safety Report 10547835 (Version 1)
Quarter: 2014Q4

REPORT INFORMATION
  Report Type: Spontaneous
  Country: US (occurrence: None)
  Receive Date: 20141027
  Receipt Date: 20141027
  Transmission Date: 20150529
  Serious: Yes (Life-Threatening, Other)
  Sender: FDA-Public Use
  Company Number: None

PATIENT
  Age: 64 Year
  Sex: Male
  Weight: 84.2 kg

DRUGS (3)
  1. LIDOCAINE. [Suspect]
     Active Substance: LIDOCAINE
     Indication: SURGERY
     Route: 050
     Dates: start: 20120816, end: 20120816
  2. LIDOCAINE. [Suspect]
     Active Substance: LIDOCAINE
     Indication: CARDIOVASCULAR DISORDER
     Route: 050
     Dates: start: 20120816, end: 20120816
  3. LIDOCAINE. [Suspect]
     Active Substance: LIDOCAINE
     Route: 050
     Dates: start: 20120816, end: 20120816

REACTIONS (7)
  - Hypotension [None]
  - Sedation [None]
  - Speech disorder [None]
  - Respiratory distress [None]
  - Blood creatinine increased [None]
  - Seizure [None]
  - Blood urea increased [None]

NARRATIVE: CASE EVENT DATE: 20120816
